FAERS Safety Report 6308994-4 (Version None)
Quarter: 2009Q3

REPORT INFORMATION
  Report Type: 
  Country: None (occurrence: None)
  Receive Date: 20090813
  Receipt Date: 20090810
  Transmission Date: 20100115
  Serious: Yes (Other)
  Sender: FDA-Public Use
  Company Number: US-MERCK-0908USA01676

PATIENT
  Sex: Female

DRUGS (12)
  1. SINGULAIR [Suspect]
     Route: 048
     Dates: start: 20060206
  2. TELITHROMYCIN [Suspect]
     Indication: SINUSITIS
     Route: 048
     Dates: start: 20060112, end: 20060201
  3. FLUTICASONE [Concomitant]
     Route: 065
     Dates: end: 20060206
  4. FLUOXETINE [Concomitant]
     Route: 065
     Dates: start: 20060206
  5. MONTELUKAST [Concomitant]
     Route: 048
     Dates: start: 20060206
  6. ESTRADIOL AND NORETHINDRONE ACETATE [Concomitant]
     Route: 065
     Dates: start: 20060206
  7. PREDNISONE [Concomitant]
     Route: 065
  8. VITAMIN E [Concomitant]
     Route: 065
     Dates: start: 20060206
  9. HERBS (UNSPECIFIED) [Concomitant]
     Route: 065
     Dates: start: 20060101
  10. TRIAMCINOLONE [Concomitant]
     Route: 065
  11. SERETIDE [Concomitant]
     Route: 065
  12. FLUTICASONE [Concomitant]
     Route: 065

REACTIONS (12)
  - ASTHENIA [None]
  - ATELECTASIS [None]
  - DIZZINESS [None]
  - ENTEROCOLITIS INFECTIOUS [None]
  - HEPATIC LESION [None]
  - HEPATITIS [None]
  - LOSS OF CONSCIOUSNESS [None]
  - NAUSEA [None]
  - PRURITUS [None]
  - RASH [None]
  - RENAL CYST [None]
  - RENAL INJURY [None]
